FAERS Safety Report 14484684 (Version 8)
Quarter: 2022Q2

REPORT INFORMATION
  Report Type: Report from Study
  Country: KR (occurrence: None)
  Receive Date: 20180205
  Receipt Date: 20220629
  Transmission Date: 20220721
  Serious: Yes (Hospitalization)
  Sender: FDA-Public Use
  Company Number: KR-ROCHE-2063888

PATIENT
  Age: 68 Year
  Sex: Female
  Weight: 56.4 kg

DRUGS (13)
  1. ATEZOLIZUMAB [Suspect]
     Active Substance: ATEZOLIZUMAB
     Indication: Transitional cell carcinoma
     Dosage: DATE OF MOST RECENT DOSE 12/JAN/2018, START TIME 14 43
     Route: 041
     Dates: start: 20180112
  2. JANUVIA [Concomitant]
     Active Substance: SITAGLIPTIN PHOSPHATE
     Indication: Diabetes mellitus
     Route: 048
  3. DIABEX [Concomitant]
     Active Substance: METFORMIN HYDROCHLORIDE
     Indication: Diabetes mellitus
     Route: 048
  4. URSODIOL [Concomitant]
     Active Substance: URSODIOL
     Route: 048
  5. ATACAND [Concomitant]
     Active Substance: CANDESARTAN CILEXETIL
     Indication: Hypertension
     Route: 048
  6. LIPITOR [Concomitant]
     Active Substance: ATORVASTATIN CALCIUM
     Indication: Hyperlipidaemia
     Route: 048
  7. CELBESTA [Concomitant]
     Indication: Pain
     Route: 048
     Dates: start: 20180112, end: 20180118
  8. TRIAXONE [Concomitant]
     Indication: Infection prophylaxis
     Route: 042
     Dates: start: 20180126, end: 20180130
  9. HUMULIN N [Concomitant]
     Active Substance: INSULIN HUMAN
     Indication: Diabetes mellitus
     Route: 058
     Dates: start: 20180126, end: 20180129
  10. HUMULIN R [Concomitant]
     Active Substance: INSULIN HUMAN
     Indication: Diabetes mellitus
     Route: 058
     Dates: start: 20180127, end: 20180128
  11. PREDNISOLONE [Concomitant]
     Active Substance: PREDNISOLONE
     Indication: Systemic immune activation
     Route: 048
     Dates: start: 20180128, end: 20180206
  12. GASTER [Concomitant]
     Active Substance: FAMOTIDINE
     Route: 048
     Dates: start: 20180130, end: 20180206
  13. ATORVASTATIN [Concomitant]
     Active Substance: ATORVASTATIN
     Indication: Hypertension
     Route: 048
     Dates: start: 20180130

REACTIONS (1)
  - Systemic immune activation [Recovered/Resolved]

NARRATIVE: CASE EVENT DATE: 20180125
